FAERS Safety Report 17647546 (Version 3)
Quarter: 2020Q4

REPORT INFORMATION
  Report Type: Spontaneous
  Country: US (occurrence: US)
  Receive Date: 20200409
  Receipt Date: 20201014
  Transmission Date: 20210113
  Serious: No
  Sender: FDA-Public Use
  Company Number: US-TEVA-2020-US-1217828

PATIENT
  Age: 75 Year
  Sex: Female

DRUGS (4)
  1. ALBUTEROL HFA TEVA [Suspect]
     Active Substance: ALBUTEROL SULFATE
     Indication: BRONCHITIS
     Dosage: 2 PUFFS 4 TIMES A DAY
     Route: 055
     Dates: start: 20200324, end: 20200330
  2. MEDROL [Concomitant]
     Active Substance: METHYLPREDNISOLONE
     Indication: COUGH
  3. ALBUTEROL HFA TEVA [Suspect]
     Active Substance: ALBUTEROL SULFATE
     Indication: COUGH
  4. MEDROL [Concomitant]
     Active Substance: METHYLPREDNISOLONE
     Indication: DYSPNOEA
     Route: 065

REACTIONS (2)
  - Drug ineffective [Unknown]
  - Device delivery system issue [Unknown]

NARRATIVE: CASE EVENT DATE: 202003
